FAERS Safety Report 11446628 (Version 1)
Quarter: 2015Q3

REPORT INFORMATION
  Report Type: Spontaneous
  Country: US (occurrence: US)
  Receive Date: 20150831
  Receipt Date: 20150831
  Transmission Date: 20151125
  Serious: No
  Sender: FDA-Public Use
  Company Number: US-ELI_LILLY_AND_COMPANY-US200809002470

PATIENT
  Age: 61 Year
  Sex: Female

DRUGS (3)
  1. CYMBALTA [Suspect]
     Active Substance: DULOXETINE HYDROCHLORIDE
     Indication: DEPRESSION
     Dosage: 90 MG, UNK
     Dates: start: 2005
  2. BETHANECHOL [Concomitant]
     Active Substance: BETHANECHOL
     Dosage: 20 MG, UNK
     Dates: start: 20080909
  3. BETHANECHOL [Concomitant]
     Active Substance: BETHANECHOL
     Dosage: 30 MG, UNK
     Dates: start: 20080908

REACTIONS (3)
  - Urinary hesitation [Not Recovered/Not Resolved]
  - Back pain [Unknown]
  - Seasonal affective disorder [Unknown]
